FAERS Safety Report 9281760 (Version 1)
Quarter: 2013Q2

REPORT INFORMATION
  Report Type: Spontaneous
  Country: BR (occurrence: BR)
  Receive Date: 20130510
  Receipt Date: 20130510
  Transmission Date: 20140414
  Serious: Yes (Other)
  Sender: FDA-Public Use
  Company Number: BR-AMGEN-BRACT2012017462

PATIENT
  Age: 37 Year
  Sex: Female
  Weight: 60 kg

DRUGS (10)
  1. ENBREL [Suspect]
     Indication: ANKYLOSING SPONDYLITIS
     Dosage: 50 MG, WEEKLY
     Route: 058
     Dates: start: 201110, end: 201201
  2. ENBREL [Suspect]
     Dosage: 50 MG, QWK
     Route: 058
     Dates: start: 201110
  3. PURAN T4 [Concomitant]
     Dosage: UNK
  4. CALCIUM [Concomitant]
     Dosage: 5 MG, UNK
  5. FOLIC ACID [Concomitant]
     Dosage: 50 MG, UNK
  6. SERTRALINE HYDROCHLORIDE [Concomitant]
     Dosage: 25 MG, UNK
  7. OMEPRAZOLE [Concomitant]
     Dosage: 20 MG, UNK
  8. SODIUM CHLORIDE [Concomitant]
     Dosage: UNK
  9. GLUCOSAMINE [Concomitant]
     Dosage: UNK
  10. GEROVITAL H3 [Concomitant]
     Dosage: UNK

REACTIONS (8)
  - Blood cholesterol increased [Unknown]
  - Tympanic membrane perforation [Unknown]
  - Cough [Unknown]
  - Influenza [Not Recovered/Not Resolved]
  - Rhinitis [Not Recovered/Not Resolved]
  - Pyrexia [Unknown]
  - Dizziness [Not Recovered/Not Resolved]
  - Malaise [Not Recovered/Not Resolved]
